FAERS Safety Report 7395059-6 (Version None)
Quarter: 2011Q2

REPORT INFORMATION
  Report Type: 
  Country: None (occurrence: None)
  Receive Date: 20110405
  Receipt Date: 20110324
  Transmission Date: 20111010
  Serious: Yes (Death)
  Sender: FDA-Public Use
  Company Number: GB-MERCK-1103GBR00133

PATIENT

DRUGS (2)
  1. EMEND [Suspect]
     Route: 048
  2. FENTANYL [Concomitant]
     Route: 065

REACTIONS (1)
  - DEATH [None]
